FAERS Safety Report 13202130 (Version 3)
Quarter: 2022Q1

REPORT INFORMATION
  Report Type: Other
  Country: US (occurrence: None)
  Receive Date: 20170209
  Receipt Date: 20220221
  Transmission Date: 20220423
  Serious: Yes (Other)
  Sender: FDA-Public Use
  Company Number: US-ROCHE-1891018

PATIENT

DRUGS (2)
  1. RITUXIMAB [Suspect]
     Active Substance: RITUXIMAB
     Indication: B-cell lymphoma
     Dosage: DAYS 2, 8, 15, AND 22 OF CYCLE 1 AND THEN DAY 1 OF CYCLES 3, 5, 7, 9, 11 FOR 28-DAY CYCLES.
     Route: 041
  2. BUPARLISIB [Suspect]
     Active Substance: BUPARLISIB
     Indication: B-cell lymphoma
     Dosage: DAYS 1- 28
     Route: 065

REACTIONS (25)
  - Hyperglycaemia [Unknown]
  - Hypertension [Unknown]
  - Anxiety [Unknown]
  - Sinusitis [Unknown]
  - Neuropathy peripheral [Unknown]
  - Wrist fracture [Unknown]
  - Neutropenia [Unknown]
  - Febrile neutropenia [Unknown]
  - Lymphopenia [Unknown]
  - White blood cell count decreased [Unknown]
  - Rash [Unknown]
  - Aspartate aminotransferase increased [Unknown]
  - Alanine aminotransferase increased [Unknown]
  - Depression [Unknown]
  - Infection [Unknown]
  - Infusion related reaction [Unknown]
  - Mania [Unknown]
  - Hallucination [Unknown]
  - Mental disorder [Unknown]
  - Hyperkalaemia [Unknown]
  - Delusion [Unknown]
  - Pneumonia [Unknown]
  - Lipase increased [Unknown]
  - Pneumonia aspiration [Unknown]
  - Colitis microscopic [Unknown]
